FAERS Safety Report 7676692-0 (Version None)
Quarter: 2011Q3

REPORT INFORMATION
  Report Type: 
  Country: None (occurrence: None)
  Receive Date: 20110811
  Receipt Date: 20110809
  Transmission Date: 20111222
  Serious: Yes (Other)
  Sender: FDA-Public Use
  Company Number: FI-PFIZER INC-2011182174

PATIENT
  Age: 28 Year
  Sex: Male

DRUGS (4)
  1. ZIPRASIDONE HYDROCHLORIDE [Suspect]
     Indication: DEPRESSION
     Dosage: 40 MG, 2X/DAY
     Dates: start: 20100101
  2. SEPRAM [Concomitant]
     Indication: DEPRESSION
     Dosage: UNK
  3. QUETIAPINE FUMARATE [Concomitant]
     Indication: ANXIETY
     Dosage: 25 MG, UNK
  4. LAMOTRIGINE [Concomitant]
     Dosage: UNK
     Dates: start: 20101201

REACTIONS (2)
  - TOXICITY TO VARIOUS AGENTS [None]
  - LIPIDS INCREASED [None]
